FAERS Safety Report 9778035 (Version 1)
Quarter: 2013Q4

REPORT INFORMATION
  Report Type: Spontaneous
  Country: IT (occurrence: IT)
  Receive Date: 20131223
  Receipt Date: 20131223
  Transmission Date: 20140711
  Serious: Yes (Hospitalization)
  Sender: FDA-Public Use
  Company Number: IT-ACCORD-020857

PATIENT
  Age: 31 Year
  Sex: Female

DRUGS (7)
  1. TOPIRAMATE [Suspect]
     Indication: PRODUCT USED FOR UNKNOWN INDICATION
     Dosage: FREQUENCY : DAILY
     Dates: start: 20131103, end: 20131128
  2. FLUOXETINE [Suspect]
     Indication: PRODUCT USED FOR UNKNOWN INDICATION
     Dosage: FREQUENCY : DAILY
     Dates: start: 20131103, end: 20131128
  3. CLORAZEPATE DIPOTASSIUM [Suspect]
     Indication: PRODUCT USED FOR UNKNOWN INDICATION
     Dosage: FREQUENCY : DAILY
     Dates: start: 20131103, end: 20131128
  4. BROMELAIN [Suspect]
     Indication: PRODUCT USED FOR UNKNOWN INDICATION
     Dosage: FREQUENCY : DAILY
     Dates: start: 20131103, end: 20131128
  5. EPHEDRINE [Suspect]
     Indication: PRODUCT USED FOR UNKNOWN INDICATION
     Dosage: FREQUENCY : DAILY
     Route: 048
     Dates: start: 20131103, end: 20131128
  6. TIRATRICOL [Suspect]
     Indication: PRODUCT USED FOR UNKNOWN INDICATION
     Dosage: 2 MG*4 TABLETS=8MG
     Route: 048
  7. SYNEPHRINE TARTRATE, DL- [Suspect]
     Indication: PRODUCT USED FOR UNKNOWN INDICATION
     Dosage: DAILY DOSE TAKEN 15 MG*4TABLETS=60 MG
     Route: 048

REACTIONS (7)
  - Apraxia [Recovering/Resolving]
  - Hypokalaemia [Recovering/Resolving]
  - Mydriasis [Recovering/Resolving]
  - Syncope [Recovering/Resolving]
  - Thyroid disorder [Recovering/Resolving]
  - Head injury [None]
  - Alanine aminotransferase increased [None]
